FAERS Safety Report 4603136-5 (Version None)
Quarter: 2005Q1

REPORT INFORMATION
  Report Type: 
  Country: None (occurrence: None)
  Receive Date: 20050307
  Receipt Date: 20050223
  Transmission Date: 20050727
  Serious: Yes (Other)
  Sender: FDA-Public Use
  Company Number: HQWYE397817FEB05

PATIENT
  Sex: Female

DRUGS (1)
  1. ADVIL [Suspect]
     Route: 048

REACTIONS (3)
  - DRUG TOXICITY [None]
  - NAUSEA [None]
  - VOMITING [None]
